FAERS Safety Report 4879177-X (Version None)
Quarter: 2006Q1

REPORT INFORMATION
  Report Type: 
  Country: None (occurrence: None)
  Receive Date: 20060112
  Receipt Date: 20051219
  Transmission Date: 20060701
  Serious: Yes (Hospitalization)
  Sender: FDA-Public Use
  Company Number: CA-ROCHE-429480

PATIENT
  Age: 56 Year
  Sex: Male

DRUGS (5)
  1. CYTOVENE IV [Suspect]
     Route: 042
     Dates: start: 20050115, end: 20050215
  2. CYTOVENE IV [Suspect]
     Dosage: DOSE LOWERED FOR PROPHYLAXIS OF CMV INFECTION.
     Route: 042
     Dates: start: 20050215, end: 20050515
  3. CYTOVENE IV [Suspect]
     Dosage: DOSE INCREASED.
     Route: 042
     Dates: start: 20050515, end: 20050815
  4. PROGRAF [Concomitant]
     Indication: RENAL TRANSPLANT
     Dates: start: 20040615
  5. CELLCEPT [Concomitant]
     Indication: RENAL TRANSPLANT
     Dates: start: 20040615

REACTIONS (5)
  - CYTOMEGALOVIRUS INFECTION [None]
  - DRUG RESISTANCE [None]
  - GASTROINTESTINAL DISORDER [None]
  - GENE MUTATION [None]
  - PATHOGEN RESISTANCE [None]
